FAERS Safety Report 6475703-8 (Version None)
Quarter: 2009Q4

REPORT INFORMATION
  Report Type: 
  Country: None (occurrence: None)
  Receive Date: 20091204
  Receipt Date: 20091124
  Transmission Date: 20100525
  Serious: Yes (Other)
  Sender: FDA-Public Use
  Company Number: FR-ELI_LILLY_AND_COMPANY-FR200911006839

PATIENT
  Sex: Male

DRUGS (1)
  1. GEMZAR [Suspect]
     Dosage: UNK, UNKNOWN
     Route: 065
     Dates: start: 20090101, end: 20090101

REACTIONS (2)
  - GASTROINTESTINAL INFLAMMATION [None]
  - RECALL PHENOMENON [None]
